FAERS Safety Report 14323905 (Version 1)
Quarter: 2017Q4

REPORT INFORMATION
  Report Type: Spontaneous
  Country: FR (occurrence: FR)
  Receive Date: 20171226
  Receipt Date: 20171226
  Transmission Date: 20180321
  Serious: Yes (Hospitalization, Other)
  Sender: FDA-Public Use
  Company Number: PHHY2017FR192726

PATIENT
  Sex: Male
  Weight: 81 kg

DRUGS (12)
  1. ROACTEMRA [Suspect]
     Active Substance: TOCILIZUMAB
     Indication: RHEUMATOID ARTHRITIS
     Dosage: 4 MG/KG, UNK
     Route: 041
     Dates: start: 20121207, end: 20150507
  2. CORTANCYL [Concomitant]
     Active Substance: PREDNISONE
     Indication: RHEUMATOID ARTHRITIS
     Dosage: 12 MG, UNK
     Route: 065
  3. CLARITYNE [Concomitant]
     Active Substance: LORATADINE
     Indication: PRODUCT USED FOR UNKNOWN INDICATION
     Dosage: 1 DF, UNK
     Route: 065
  4. PEFLACINE [Suspect]
     Active Substance: PEFLOXACIN MESYLATE
     Indication: SUBCUTANEOUS ABSCESS
     Dosage: 400 MG, UNK (2 TABLETS DAILY FOR 8 DAYS)
     Route: 065
  5. TOCILIZUMAB. [Suspect]
     Active Substance: TOCILIZUMAB
     Indication: RHEUMATOID ARTHRITIS
     Dosage: 1 DF, UNK
     Route: 058
     Dates: start: 20150610
  6. METHOTREXATE. [Suspect]
     Active Substance: METHOTREXATE
     Indication: RHEUMATOID ARTHRITIS
     Route: 065
  7. ACTONEL [Concomitant]
     Active Substance: RISEDRONATE SODIUM
     Indication: PRODUCT USED FOR UNKNOWN INDICATION
     Route: 065
  8. SPECIAFOLDINE [Concomitant]
     Active Substance: FOLIC ACID
     Indication: PRODUCT USED FOR UNKNOWN INDICATION
     Dosage: 10 MG, UNK
     Route: 065
  9. UVEDOSE [Concomitant]
     Active Substance: CHOLECALCIFEROL
     Indication: PRODUCT USED FOR UNKNOWN INDICATION
     Route: 065
  10. CORTANCYL [Concomitant]
     Active Substance: PREDNISONE
     Dosage: 15 MG, UNK
     Route: 065
  11. DOLIPRANE [Concomitant]
     Active Substance: ACETAMINOPHEN
     Indication: PRODUCT USED FOR UNKNOWN INDICATION
     Route: 065
  12. ROACTEMRA [Suspect]
     Active Substance: TOCILIZUMAB
     Dosage: 8 MG/KG, UNK
     Route: 041
     Dates: start: 20160113

REACTIONS (17)
  - Mean cell volume increased [Recovered/Resolved]
  - Tonsillitis [Recovered/Resolved]
  - Tooth abscess [Recovered/Resolved]
  - Cough [Unknown]
  - Nasopharyngitis [Unknown]
  - Neutrophil count decreased [Recovered/Resolved]
  - Conjunctivitis [Recovered/Resolved]
  - Cardiac failure [Recovered/Resolved]
  - Subcutaneous abscess [Unknown]
  - Oedema peripheral [Recovered/Resolved]
  - Rib fracture [Unknown]
  - Dyspnoea [Recovered/Resolved]
  - Ear infection [Recovered/Resolved]
  - Atrial flutter [Recovered/Resolved]
  - Lip ulceration [Recovered/Resolved]
  - Tendon disorder [Unknown]
  - Cataract [Unknown]

NARRATIVE: CASE EVENT DATE: 2013
